FAERS Safety Report 14194442 (Version 2)
Quarter: 2018Q1

REPORT INFORMATION
  Report Type: Spontaneous
  Country: US (occurrence: US)
  Receive Date: 20171116
  Receipt Date: 20180110
  Transmission Date: 20180508
  Serious: No
  Sender: FDA-Public Use
  Company Number: US-PFIZER INC-2017494564

PATIENT
  Sex: Female
  Weight: 95 kg

DRUGS (20)
  1. LYRICA [Suspect]
     Active Substance: PREGABALIN
     Dosage: UNK
  2. ASPIRIN /00002701/ [Concomitant]
     Active Substance: ASPIRIN
     Indication: COAGULOPATHY
     Dosage: 81 MG, 1X/DAY
  3. FERROUS SULFATE. [Concomitant]
     Active Substance: FERROUS SULFATE
     Indication: BLOOD DISORDER
  4. PRAVACHOL [Concomitant]
     Active Substance: PRAVASTATIN SODIUM
     Indication: BLOOD CHOLESTEROL ABNORMAL
     Dosage: 20 MG, 1X/DAY, AT NIGHT
  5. FUROSEMIDE. [Concomitant]
     Active Substance: FUROSEMIDE
     Indication: SWELLING
     Dosage: 10 MG, DAILY
  6. PROLIA [Concomitant]
     Active Substance: DENOSUMAB
     Indication: OSTEOPOROSIS
     Dosage: UNK, EVERY 6 MONTHS
  7. VITAMIN D /00107901/ [Concomitant]
     Active Substance: ERGOCALCIFEROL
     Indication: BONE DISORDER
     Dosage: 1000 IU, 1X/DAY
  8. GLUCOSAMINE HYDROCHLORIDE/CHONDROITIN SULFATE [Concomitant]
     Indication: BONE DISORDER
     Dosage: 1200 MG, 1X/DAY
  9. GLUCOSAMINE HYDROCHLORIDE/CHONDROITIN SULFATE [Concomitant]
     Indication: ARTHROPATHY
  10. VICKS NYQUIL [Concomitant]
     Active Substance: ACETAMINOPHEN\DEXTROMETHORPHAN HYDROBROMIDE\DOXYLAMINE SUCCINATE
     Indication: HYPERSENSITIVITY
     Dosage: UNK, AT NIGHT
  11. FISH OIL [Concomitant]
     Active Substance: FISH OIL
     Dosage: 1200 MG, DAILY
  12. LISINOPRIL. [Concomitant]
     Active Substance: LISINOPRIL
     Indication: HYPERTENSION
     Dosage: 10 MG, 1X/DAY
  13. VITAMIN B12 [Concomitant]
     Active Substance: CYANOCOBALAMIN
     Indication: VASCULAR GRAFT
     Dosage: 2 DF, WEEKLY, ONCE A WEEK
     Route: 048
  14. CALCIUM D /00944201/ [Concomitant]
     Active Substance: CALCIUM CARBONATE\CHOLECALCIFEROL
     Indication: BONE DISORDER
     Dosage: 600 MG, 2X/DAY
  15. COENZYME Q10 [Concomitant]
     Active Substance: UBIDECARENONE
     Indication: MALABSORPTION
     Dosage: 300 MG, 1X/DAY
  16. PRESERVISION [Concomitant]
     Active Substance: MINERALS\VITAMINS
     Indication: EYE DISORDER
     Dosage: UNK UNK, 1X/DAY
  17. POTASSIUM [Concomitant]
     Active Substance: POTASSIUM
     Indication: BLOOD POTASSIUM DECREASED
     Dosage: UNK UNK, 1X/DAY, 10
  18. FERROUS SULFATE. [Concomitant]
     Active Substance: FERROUS SULFATE
     Indication: ASTHENIA
     Dosage: 325 MG, 1X/DAY
  19. PERCOCET [Concomitant]
     Active Substance: ACETAMINOPHEN\OXYCODONE HYDROCHLORIDE
     Indication: ARTHRITIS
     Dosage: 6 DF, DAILY, [OXYCODONE HYDROCHLORIDE 10 MG]/[ PARACETAMOL 325 MG]
  20. SENTRY SENIOR [Concomitant]
     Indication: VITAMIN SUPPLEMENTATION
     Dosage: UNK UNK, 1X/DAY

REACTIONS (1)
  - Alopecia [Recovered/Resolved]

NARRATIVE: CASE EVENT DATE: 2015
